FAERS Safety Report 11022991 (Version 2)
Quarter: 2015Q2

REPORT INFORMATION
  Report Type: Spontaneous
  Country: US (occurrence: US)
  Receive Date: 20150413
  Receipt Date: 20150413
  Transmission Date: 20150821
  Serious: Yes (Other)
  Sender: FDA-Public Use
  Company Number: US-ASTELLAS-2014US010054

PATIENT
  Sex: Male

DRUGS (1)
  1. PROTOPIC [Suspect]
     Active Substance: TACROLIMUS
     Indication: PRURITUS
     Dosage: 0.1 %, ONCE DAILY
     Route: 061
     Dates: start: 201406, end: 20140705

REACTIONS (11)
  - Eye pain [Unknown]
  - Cough [Unknown]
  - Pruritus [Unknown]
  - Dyspnoea [Unknown]
  - Temperature intolerance [Unknown]
  - Photosensitivity reaction [Unknown]
  - Weight decreased [Unknown]
  - Dizziness [Not Recovered/Not Resolved]
  - Fatigue [Not Recovered/Not Resolved]
  - Ocular hyperaemia [Unknown]
  - Hyperhidrosis [Unknown]
